FAERS Safety Report 9726144 (Version 2)
Quarter: 2014Q1

REPORT INFORMATION
  Report Type: Spontaneous
  Country: JP (occurrence: JP)
  Receive Date: 20131203
  Receipt Date: 20140128
  Transmission Date: 20141002
  Serious: Yes (Death)
  Sender: FDA-Public Use
  Company Number: JP-CUBIST PHARMACEUTICAL, INC.-2013CBST001220

PATIENT
  Sex: 0

DRUGS (3)
  1. CUBICIN [Suspect]
     Indication: PULMONARY EMBOLISM
     Dosage: 6.4 MG/KG (350 MG), Q24H
     Route: 041
  2. CUBICIN [Suspect]
     Indication: STAPHYLOCOCCAL BACTERAEMIA
     Dosage: UNK UNK, UNK
     Route: 051
  3. CUBICIN [Suspect]
     Indication: OFF LABEL USE

REACTIONS (3)
  - Respiratory failure [Fatal]
  - Staphylococcal bacteraemia [Recovered/Resolved]
  - Drug ineffective for unapproved indication [Unknown]
